FAERS Safety Report 4896100-2 (Version None)
Quarter: 2005Q4

REPORT INFORMATION
  Report Type: 
  Country: None (occurrence: None)
  Receive Date: 20051220
  Receipt Date: 20050720
  Transmission Date: 20060501
  Serious: Yes (Other)
  Sender: FDA-Public Use
  Company Number: US143531

PATIENT
  Age: 72 Year
  Sex: Male
  Weight: 83.1 kg

DRUGS (10)
  1. ENBREL [Suspect]
     Indication: RHEUMATOID ARTHRITIS
     Dosage: 25 MG, 2 IN 1 WEEKS, SC
     Route: 058
     Dates: start: 20040805, end: 20041213
  2. PREDNISONE [Concomitant]
  3. METHOTREXATE [Concomitant]
  4. ATENOLOL [Concomitant]
  5. LANSOPRAZOLE [Concomitant]
  6. PRAVASTATIN SODIUM [Concomitant]
  7. ASPIRIN [Concomitant]
  8. FOLIC ACID [Concomitant]
  9. NIASAPN [Concomitant]
  10. GLYCERYL TRINITRATE [Concomitant]

REACTIONS (1)
  - CUTANEOUS VASCULITIS [None]
